FAERS Safety Report 7417485-9 (Version None)
Quarter: 2011Q2

REPORT INFORMATION
  Report Type: 
  Country: None (occurrence: None)
  Receive Date: 20110415
  Receipt Date: 20110413
  Transmission Date: 20111010
  Serious: Yes (Other)
  Sender: FDA-Public Use
  Company Number: AU-PFIZER INC-2011081553

PATIENT
  Sex: Female

DRUGS (3)
  1. ZELDOX [Suspect]
     Dosage: 40 MG, 2X/DAY
     Dates: start: 20110401, end: 20110401
  2. ZELDOX [Suspect]
     Dosage: 60 MG, 2X/DAY
     Dates: start: 20110401, end: 20110401
  3. ZELDOX [Suspect]
     Dosage: 80 MG, 2X/DAY
     Dates: start: 20110401, end: 20110401

REACTIONS (2)
  - OROMANDIBULAR DYSTONIA [None]
  - SPEECH DISORDER [None]
